FAERS Safety Report 5619651-1 (Version None)
Quarter: 2008Q1

REPORT INFORMATION
  Report Type: 
  Country: None (occurrence: None)
  Receive Date: 20080206
  Receipt Date: 20080124
  Transmission Date: 20080703
  Serious: Yes (Other)
  Sender: FDA-Public Use
  Company Number: 230895J08USA

PATIENT
  Age: 34 Year
  Sex: Female

DRUGS (4)
  1. REBIF [Suspect]
     Indication: MULTIPLE SCLEROSIS
     Dosage: 44 MCG, 3 IN 1 WEEKS, SUBCUTANEOUS
     Route: 058
     Dates: start: 20030101, end: 20030201
  2. LEXAPRO [Suspect]
     Indication: DEPRESSION
     Dates: start: 20020101, end: 20030201
  3. NEURONTIN [Suspect]
     Indication: NEURALGIA
     Dates: start: 20020101, end: 20030201
  4. MECLIZINE [Suspect]
     Indication: BALANCE DISORDER
     Dates: start: 20020101, end: 20030201

REACTIONS (7)
  - DRUG EXPOSURE DURING PREGNANCY [None]
  - FEELING ABNORMAL [None]
  - FOETAL DISORDER [None]
  - INDUCED LABOUR [None]
  - MULTIPLE SCLEROSIS [None]
  - PREGNANCY [None]
  - SKIN DISCOLOURATION [None]
